FAERS Safety Report 19670832 (Version 1)
Quarter: 2021Q3

REPORT INFORMATION
  Report Type: Spontaneous
  Country: CA (occurrence: CA)
  Receive Date: 20210806
  Receipt Date: 20210806
  Transmission Date: 20211014
  Serious: Yes (Other)
  Sender: FDA-Public Use
  Company Number: CA-TAKEDA-2021TUS047463

PATIENT
  Sex: Female

DRUGS (2)
  1. GAMMAGARD LIQUID [Suspect]
     Active Substance: HUMAN IMMUNOGLOBULIN G
     Dosage: 90 GRAM
     Route: 042
  2. GAMMAGARD LIQUID [Suspect]
     Active Substance: HUMAN IMMUNOGLOBULIN G
     Indication: STIFF PERSON SYNDROME
     Dosage: 120 GRAM, Q3WEEKS
     Route: 065
     Dates: start: 201811

REACTIONS (6)
  - Product use in unapproved indication [Unknown]
  - Anaphylactic reaction [Unknown]
  - Paraesthesia [Unknown]
  - Pain in extremity [Unknown]
  - Acarodermatitis [Unknown]
  - COVID-19 [Unknown]
